FAERS Safety Report 25262937 (Version 1)
Quarter: 2025Q2

REPORT INFORMATION
  Report Type: Spontaneous
  Country: US (occurrence: US)
  Receive Date: 20250502
  Receipt Date: 20250502
  Transmission Date: 20250717
  Serious: Yes (Hospitalization, Other)
  Sender: NORVIUM BIOSCIENCE LLC
  Company Number: US-Norvium Bioscience LLC-080111

PATIENT
  Age: 85 Year
  Sex: Male

DRUGS (1)
  1. HYDRALAZINE HYDROCHLORIDE [Suspect]
     Active Substance: HYDRALAZINE HYDROCHLORIDE
     Indication: Product used for unknown indication
     Dosage: PAST 20 YEARS

REACTIONS (4)
  - Anti-neutrophil cytoplasmic antibody positive vasculitis [Unknown]
  - Overlap syndrome [Unknown]
  - Bicytopenia [Unknown]
  - End stage renal disease [Not Recovered/Not Resolved]
